FAERS Safety Report 4928805-9 (Version None)
Quarter: 2006Q1

REPORT INFORMATION
  Report Type: 
  Country: None (occurrence: None)
  Receive Date: 20060227
  Receipt Date: 20060227
  Transmission Date: 20060701
  Serious: Yes (Other)
  Sender: FDA-Public Use
  Company Number: None

PATIENT

DRUGS (1)
  1. SUCCINYLCHOLINE 200 MG/10 ML -20 MG/ML -10 ML VIAL HOSPITA WORLDWIDE I [Suspect]
     Indication: INDUCTION OF ANAESTHESIA
     Dosage: 200 MG ONCE IV BOLUS
     Route: 042

REACTIONS (5)
  - ANAESTHETIC COMPLICATION [None]
  - DRUG EFFECT DECREASED [None]
  - MUSCLE TWITCHING [None]
  - PHARMACEUTICAL PRODUCT COMPLAINT [None]
  - POOR QUALITY DRUG ADMINISTERED [None]
